FAERS Safety Report 22629162 (Version 1)
Quarter: 2023Q2

REPORT INFORMATION
  Report Type: Spontaneous
  Country: AR (occurrence: AR)
  Receive Date: 20230622
  Receipt Date: 20230622
  Transmission Date: 20230722
  Serious: Yes (Other)
  Sender: FDA-Public Use
  Company Number: AR-SERVIER-S23006649

PATIENT

DRUGS (5)
  1. ONCASPAR [Suspect]
     Active Substance: PEGASPARGASE
     Indication: B-cell type acute leukaemia
     Dosage: UNK
     Route: 065
     Dates: start: 202301
  2. METHOTREXATE [Suspect]
     Active Substance: METHOTREXATE
     Indication: B-cell type acute leukaemia
     Dosage: UNK
     Route: 065
     Dates: start: 202301
  3. VINCRISTINE [Suspect]
     Active Substance: VINCRISTINE
     Indication: B-cell type acute leukaemia
     Dosage: UNK
     Route: 065
     Dates: start: 202301
  4. CYCLOPHOSPHAMIDE [Suspect]
     Active Substance: CYCLOPHOSPHAMIDE
     Indication: B-cell type acute leukaemia
     Dosage: UNK
     Route: 065
     Dates: start: 202301
  5. DEXAMETHASONE [Suspect]
     Active Substance: DEXAMETHASONE
     Indication: B-cell type acute leukaemia
     Dosage: UNK
     Route: 065
     Dates: start: 202301

REACTIONS (3)
  - Pancreatitis necrotising [Unknown]
  - Acute kidney injury [Unknown]
  - Drug clearance decreased [Unknown]

NARRATIVE: CASE EVENT DATE: 20230401
